FAERS Safety Report 8149432-9 (Version None)
Quarter: 2012Q1

REPORT INFORMATION
  Report Type: 
  Country: None (occurrence: None)
  Receive Date: 20120218
  Receipt Date: 20111011
  Transmission Date: 20120608
  Serious: Yes (Other)
  Sender: FDA-Public Use
  Company Number: US-ALLERGAN-1113419US

PATIENT
  Age: 12 Year
  Sex: Female
  Weight: 28.571 kg

DRUGS (2)
  1. BOTULINUM TOXIN TYPE A [Suspect]
     Indication: DROOLING
     Dosage: UNK
     Route: 030
     Dates: start: 20110119, end: 20110119
  2. BOTULINUM TOXIN TYPE A [Suspect]
     Indication: MUSCLE SPASTICITY
     Dosage: UNK
     Dates: start: 20100716, end: 20100716

REACTIONS (1)
  - PNEUMONIA [None]
